FAERS Safety Report 4391555-4 (Version None)
Quarter: 2004Q3

REPORT INFORMATION
  Report Type: 
  Country: None (occurrence: None)
  Receive Date: 20040702
  Receipt Date: 20040423
  Transmission Date: 20050211
  Serious: Yes (Other)
  Sender: FDA-Public Use
  Company Number: 2004UW08260

PATIENT
  Age: 71 Year
  Sex: Female
  Weight: 99.7913 kg

DRUGS (5)
  1. CRESTOR [Suspect]
     Indication: HYPERCHOLESTEROLAEMIA
     Dosage: 5 MG DAILY PO
     Route: 048
     Dates: start: 20040418
  2. ZOLOFT [Concomitant]
  3. METFORMIN [Concomitant]
  4. DELACORT [Concomitant]
  5. ASPIRIN [Concomitant]

REACTIONS (1)
  - HEART RATE INCREASED [None]
